FAERS Safety Report 18154356 (Version 2)
Quarter: 2020Q3

REPORT INFORMATION
  Report Type: Spontaneous
  Country: CN (occurrence: CN)
  Receive Date: 20200817
  Receipt Date: 20200819
  Transmission Date: 20201103
  Serious: Yes (Other)
  Sender: FDA-Public Use
  Company Number: CN-ABBVIE-20K-035-3524155-00

PATIENT
  Age: 21 Year
  Sex: Male
  Weight: 98 kg

DRUGS (2)
  1. RECOMBINANT HUMAN INTERFERON A?2B [Concomitant]
     Indication: CORONAVIRUS INFECTION
  2. ALUVIA [Suspect]
     Active Substance: LOPINAVIR\RITONAVIR
     Indication: CORONAVIRUS INFECTION
     Route: 048
     Dates: start: 20200706, end: 20200716

REACTIONS (3)
  - Off label use [Unknown]
  - Drug-induced liver injury [Recovered/Resolved]
  - Liver injury [Recovered/Resolved]

NARRATIVE: CASE EVENT DATE: 20200706
